FAERS Safety Report 4536679-3 (Version None)
Quarter: 2004Q4

REPORT INFORMATION
  Report Type: 
  Country: None (occurrence: None)
  Receive Date: 20041223
  Receipt Date: 20041213
  Transmission Date: 20050328
  Serious: Yes (Hospitalization)
  Sender: FDA-Public Use
  Company Number: JP-JNJFOC-20041201292

PATIENT
  Age: 69 Year
  Sex: Male

DRUGS (6)
  1. ITRIZOLE [Suspect]
     Route: 049
     Dates: start: 20040625, end: 20041010
  2. ITRIZOLE [Suspect]
     Indication: ONYCHOMYCOSIS
     Route: 049
     Dates: start: 20040625, end: 20041010
  3. DOXAZOSIN MESYLATE [Concomitant]
     Route: 065
  4. FAMOTIDINE [Concomitant]
     Route: 049
  5. NIFEDIPINE [Concomitant]
     Route: 049
  6. CANDESARTAN CILEXETIL [Concomitant]
     Route: 049

REACTIONS (9)
  - ABDOMINAL PAIN UPPER [None]
  - ALANINE AMINOTRANSFERASE INCREASED [None]
  - ASPARTATE AMINOTRANSFERASE INCREASED [None]
  - BLOOD LACTATE DEHYDROGENASE INCREASED [None]
  - BRADYCARDIA [None]
  - GAMMA-GLUTAMYLTRANSFERASE INCREASED [None]
  - HEPATIC FUNCTION ABNORMAL [None]
  - ILEUS [None]
  - NAUSEA [None]
